FAERS Safety Report 8219160-X (Version None)
Quarter: 2012Q1

REPORT INFORMATION
  Report Type: 
  Country: None (occurrence: None)
  Receive Date: 20120319
  Receipt Date: 20120315
  Transmission Date: 20120608
  Serious: No
  Sender: FDA-Public Use
  Company Number: US-PFIZER INC-2012068904

PATIENT
  Sex: Female

DRUGS (1)
  1. IBUPROFEN (ADVIL) [Suspect]
     Indication: SCIATICA
     Dosage: 200 MG, 2X/DAY
     Route: 048
     Dates: start: 20120201, end: 20120313

REACTIONS (1)
  - JOINT SWELLING [None]
